FAERS Safety Report 13276578 (Version 1)
Quarter: 2017Q1

REPORT INFORMATION
  Report Type: Spontaneous
  Country: NL (occurrence: NL)
  Receive Date: 20170228
  Receipt Date: 20170228
  Transmission Date: 20170428
  Serious: Yes (Hospitalization, Other)
  Sender: FDA-Public Use
  Company Number: NL-TEVA-743679ACC

PATIENT
  Age: 67 Year
  Sex: Male
  Weight: 70 kg

DRUGS (11)
  1. DUSPATAL RETARD CAPSULE MGA 200MG [Concomitant]
     Dosage: 400 MILLIGRAM DAILY;
     Route: 048
     Dates: start: 20161225
  2. GLICLAZIDE TABLET MGA 80MG [Concomitant]
     Dosage: 160 MILLIGRAM DAILY;
     Route: 048
     Dates: start: 20161107
  3. PANTOPRAZOLE SODIUM. [Concomitant]
     Active Substance: PANTOPRAZOLE SODIUM
     Dosage: 20 MILLIGRAM DAILY;
     Route: 048
     Dates: start: 20130827
  4. DESLORATADINE TABLET 5MG [Concomitant]
     Dosage: 5 MILLIGRAM DAILY;
     Route: 048
     Dates: start: 20131111
  5. SALBUTAMOL AEROSOL 100UG/DO [Concomitant]
     Active Substance: ALBUTEROL
     Dosage: 1 DOSAGE FORMS DAILY;
     Route: 055
     Dates: start: 20160506
  6. ULTIBRO BREEZHALER INHALPDR 85/43MCG MET BREEZHAL [Concomitant]
     Dosage: 1 DOSAGE FORMS DAILY;
     Route: 055
     Dates: start: 20160128
  7. ALVESCO 160 AEROSOL 160MCG/DO SPBS  60DO + INH [Concomitant]
     Dosage: 2 DOSAGE FORMS DAILY;
     Route: 055
     Dates: start: 20160128
  8. DOMPERIDON TABLET 10MG [Concomitant]
     Active Substance: DOMPERIDONE
     Dosage: 30 MILLIGRAM DAILY;
     Route: 048
     Dates: start: 20161129
  9. METFORMIN TABLET 500 MG [Suspect]
     Active Substance: METFORMIN HYDROCHLORIDE
     Indication: TYPE 2 DIABETES MELLITUS
     Dosage: 1000 MILLIGRAM DAILY;
     Route: 048
     Dates: start: 20161010, end: 201612
  10. MACROGOL/ZOUTEN PDR V DRANK (MOVIC/MOLAX/LAXT/GEN) [Concomitant]
     Dosage: 1 DOSAGE FORMS DAILY;
     Route: 048
     Dates: start: 20160509
  11. MICROLAX KLYSMA FLACON 5ML [Concomitant]
     Dosage: 2 TIMES DAILY 1 PIECE
     Route: 054
     Dates: start: 20161129

REACTIONS (1)
  - Crohn^s disease [Recovering/Resolving]

NARRATIVE: CASE EVENT DATE: 201612
